FAERS Safety Report 18207108 (Version 2)
Quarter: 2020Q4

REPORT INFORMATION
  Report Type: Spontaneous
  Country: JP (occurrence: JP)
  Receive Date: 20200828
  Receipt Date: 20201102
  Transmission Date: 20210113
  Serious: Yes (Other)
  Sender: FDA-Public Use
  Company Number: JP-JNJFOC-20200834524

PATIENT
  Age: 45 Year
  Sex: Male

DRUGS (4)
  1. METOCLOPRAMIDE. [Suspect]
     Active Substance: METOCLOPRAMIDE
     Dosage: DOSE UNKNOWN
     Route: 048
  2. LOXONIN [Concomitant]
     Active Substance: LOXOPROFEN SODIUM
     Indication: POST-TRAUMATIC PAIN
     Dosage: DOSE UNKNOWN
     Route: 048
  3. ACETAMINOPHEN. [Concomitant]
     Active Substance: ACETAMINOPHEN
     Dosage: DOSE UNKNOWN
     Route: 048
  4. TRAMCET [Suspect]
     Active Substance: ACETAMINOPHEN\TRAMADOL
     Indication: PAIN
     Dosage: DOSE UNKNOWN
     Route: 048
     Dates: start: 20190826, end: 20190827

REACTIONS (3)
  - Erythema multiforme [Recovered/Resolved]
  - Off label use [Unknown]
  - Contraindication to medical treatment [Unknown]

NARRATIVE: CASE EVENT DATE: 20190827
